FAERS Safety Report 9404043 (Version 1)
Quarter: 2013Q3

REPORT INFORMATION
  Report Type: Spontaneous
  Country: FR (occurrence: FR)
  Receive Date: 20130717
  Receipt Date: 20130717
  Transmission Date: 20140515
  Serious: Yes (Hospitalization, Congenital Anomaly)
  Sender: FDA-Public Use
  Company Number: FR-SANOFI-AVENTIS-2013SA069560

PATIENT
  Age: 1 Day
  Sex: Male
  Weight: 1.14 kg

DRUGS (6)
  1. CLOMID [Suspect]
     Indication: FOETAL EXPOSURE TIMING UNSPECIFIED
     Route: 064
  2. MOPRAL [Suspect]
     Indication: FOETAL EXPOSURE TIMING UNSPECIFIED
     Dosage: STRENGTH: 20 MG
     Route: 064
  3. RHOPHYLAC [Suspect]
     Indication: FOETAL EXPOSURE TIMING UNSPECIFIED
     Dosage: STRENGTH: 300 MG
     Route: 064
  4. UVEDOSE [Concomitant]
     Route: 064
  5. CELESTENE [Concomitant]
     Indication: LUNG DISORDER
     Route: 064
  6. TRACTOCILE [Concomitant]
     Indication: TOCOLYSIS
     Route: 064

REACTIONS (4)
  - Growth retardation [Recovered/Resolved]
  - Foetal exposure during pregnancy [Unknown]
  - Hypospadias [Recovered/Resolved]
  - Genitalia external ambiguous [Recovered/Resolved]
